FAERS Safety Report 8368366-8 (Version None)
Quarter: 2012Q2

REPORT INFORMATION
  Report Type: 
  Country: None (occurrence: None)
  Receive Date: 20120517
  Receipt Date: 20120504
  Transmission Date: 20120825
  Serious: Yes (Hospitalization, Other)
  Sender: FDA-Public Use
  Company Number: US-ELI_LILLY_AND_COMPANY-US201008008323

PATIENT
  Sex: Female

DRUGS (29)
  1. CALCIUM [Concomitant]
     Dosage: UNK, QD
  2. DOXEPIN [Concomitant]
     Dosage: UNK, QD
  3. VICODIN [Concomitant]
     Dosage: UNK, QOD
  4. PEPCID AC [Concomitant]
     Dosage: UNK, QD
  5. FORTEO [Suspect]
     Indication: OSTEOPOROSIS
     Dosage: 20 UG, QD
     Dates: start: 20100820
  6. FORTEO [Suspect]
     Dosage: 20 UG, QD
  7. FORTEO [Suspect]
     Dosage: 20 UG, QD
  8. ATARAX [Concomitant]
     Dosage: UNK, QD
  9. MACRODANTIN [Concomitant]
     Dosage: UNK, QD
  10. FORTEO [Suspect]
     Dosage: 20 UG, QD
     Dates: end: 20120401
  11. AMITIZA [Concomitant]
     Dosage: 24 MG, BID
  12. LUNESTA [Concomitant]
     Dosage: UNK, QD
  13. FIORICET [Concomitant]
     Dosage: UNK, QD
  14. SYNTHROID [Concomitant]
     Dosage: UNK, QD
  15. TOPAMAX [Concomitant]
     Dosage: UNK, QD
  16. PREMARIN [Concomitant]
     Dosage: UNK, QD
  17. FORTEO [Suspect]
     Dosage: 20 UG, QD
  18. FORTEO [Suspect]
     Dosage: 20 UG, QD
  19. NASONEX [Concomitant]
     Dosage: UNK, QD
  20. NEXIUM [Concomitant]
     Dosage: UNK, QD
  21. ZANAFLEX [Concomitant]
     Dosage: UNK, QD
  22. CYMBALTA [Suspect]
     Dosage: 30 MG, PRN
  23. POTASSIUM CHLORIDE [Concomitant]
     Dosage: UNK, QD
  24. LACTAID [Concomitant]
     Indication: LACTOSE INTOLERANCE
     Dosage: UNK, PRN
  25. BETHANECHOL [Concomitant]
     Dosage: 25 MG, UNK
  26. PHENERGAN [Concomitant]
     Dosage: UNK, QD
  27. PREMARIN [Concomitant]
     Dosage: UNK, QD
  28. ALDACTONE [Concomitant]
  29. FORTEO [Suspect]
     Dosage: 20 UG, QD

REACTIONS (24)
  - BLOOD DISORDER [None]
  - IMPAIRED GASTRIC EMPTYING [None]
  - NAUSEA [None]
  - DRY MOUTH [None]
  - CHEST PAIN [None]
  - WEIGHT DECREASED [None]
  - ERYTHEMA [None]
  - LIMB INJURY [None]
  - INJECTION SITE HAEMATOMA [None]
  - HOSPITALISATION [None]
  - SWELLING [None]
  - FALL [None]
  - JAW DISORDER [None]
  - INJECTION SITE HAEMORRHAGE [None]
  - VOMITING [None]
  - MALAISE [None]
  - BLOOD IRON DECREASED [None]
  - CONTUSION [None]
  - BLOOD POTASSIUM ABNORMAL [None]
  - DEHYDRATION [None]
  - BLISTER [None]
  - MIGRAINE [None]
  - TRANSIENT ISCHAEMIC ATTACK [None]
  - MOUTH INJURY [None]
